FAERS Safety Report 9872155 (Version 2)
Quarter: 2014Q1

REPORT INFORMATION
  Report Type: Spontaneous
  Country: US (occurrence: US)
  Receive Date: 20140205
  Receipt Date: 20140205
  Transmission Date: 20141002
  Serious: No
  Sender: FDA-Public Use
  Company Number: US-ALLERGAN-1306647US

PATIENT
  Age: 42 Year
  Sex: Female

DRUGS (4)
  1. BOTOX COSMETIC [Suspect]
     Indication: SKIN WRINKLING
     Dosage: 2.5 UNITS, SINGLE
     Dates: start: 20130426, end: 20130426
  2. BOTOX COSMETIC [Suspect]
     Indication: SKIN WRINKLING
     Dosage: 2.5 UNITS, SINGLE
     Dates: start: 20130426, end: 20130426
  3. BOTOX COSMETIC [Suspect]
     Indication: SKIN WRINKLING
     Dosage: 15 UNITS, SINGLE
     Dates: start: 20130426, end: 20130426
  4. BOTOX COSMETIC [Suspect]
     Indication: SKIN WRINKLING
     Dosage: 20 UNITS, SINGLE
     Dates: start: 20130426, end: 20130426

REACTIONS (10)
  - Swelling face [Recovered/Resolved]
  - Erythema [Recovered/Resolved]
  - Head discomfort [Recovered/Resolved]
  - Asthenopia [Recovered/Resolved]
  - Skin infection [Recovered/Resolved]
  - Injection site rash [Recovered/Resolved]
  - Wrong technique in drug usage process [Unknown]
  - Off label use [Unknown]
  - Dyspnoea [Recovered/Resolved]
  - Injection site pruritus [Recovered/Resolved]
